FAERS Safety Report 6215330-0 (Version None)
Quarter: 2009Q2

REPORT INFORMATION
  Report Type: 
  Country: None (occurrence: None)
  Receive Date: 20090604
  Receipt Date: 20090601
  Transmission Date: 20091009
  Serious: Yes (Death, Hospitalization)
  Sender: FDA-Public Use
  Company Number: US-GILEAD-2009-0021792

PATIENT
  Sex: Female

DRUGS (7)
  1. LETAIRIS [Suspect]
     Indication: PULMONARY ARTERIAL HYPERTENSION
     Route: 048
     Dates: start: 20070920, end: 20090415
  2. HUMALOG [Concomitant]
  3. LANTUS [Concomitant]
  4. ACYCLOVIR [Concomitant]
  5. DIFLUCAN [Concomitant]
  6. PREMPRO [Concomitant]
  7. CELLCEPT [Concomitant]

REACTIONS (1)
  - RESPIRATORY FAILURE [None]
